APPROVED DRUG PRODUCT: KETOCONAZOLE
Active Ingredient: KETOCONAZOLE
Strength: 2%
Dosage Form/Route: CREAM;TOPICAL
Application: A076294 | Product #001 | TE Code: AB
Applicant: FOUGERA PHARMACEUTICALS INC
Approved: Apr 28, 2004 | RLD: No | RS: No | Type: RX